FAERS Safety Report 21194406 (Version 1)
Quarter: 2022Q3

REPORT INFORMATION
  Report Type: Spontaneous
  Country: US (occurrence: US)
  Receive Date: 20220810
  Receipt Date: 20220810
  Transmission Date: 20221027
  Serious: Yes (Hospitalization)
  Sender: FDA-Public Use
  Company Number: US-Accord-271861

PATIENT
  Age: 55 Year
  Sex: Male
  Weight: 122.47 kg

DRUGS (12)
  1. AMLODIPINE [Suspect]
     Active Substance: AMLODIPINE BESYLATE
     Indication: Product used for unknown indication
  2. MIFEPRISTONE [Suspect]
     Active Substance: MIFEPRISTONE
     Indication: Cushing^s syndrome
     Route: 048
     Dates: start: 20220419, end: 20220530
  3. HYDROXYZINE [Suspect]
     Active Substance: HYDROXYZINE HYDROCHLORIDE
     Indication: Product used for unknown indication
     Dates: start: 20220701
  4. ASPIRIN [Concomitant]
     Active Substance: ASPIRIN
  5. BENAZEPRIL [Concomitant]
     Active Substance: BENAZEPRIL HYDROCHLORIDE
  6. FENOFIBRATE [Concomitant]
     Active Substance: FENOFIBRATE
  7. HUMULIN R [Concomitant]
     Active Substance: INSULIN HUMAN
  8. METFORMIN [Concomitant]
     Active Substance: METFORMIN HYDROCHLORIDE
  9. PANTOPRAZOLE [Concomitant]
     Active Substance: PANTOPRAZOLE
  10. ROSUVASTATIN [Concomitant]
     Active Substance: ROSUVASTATIN
  11. VASCEPA [Concomitant]
     Active Substance: ICOSAPENT ETHYL
  12. MIFEPRISTONE [Suspect]
     Active Substance: MIFEPRISTONE
     Indication: Cushing^s syndrome
     Route: 048
     Dates: start: 20220531

REACTIONS (16)
  - Troponin increased [Recovered/Resolved]
  - Heart rate abnormal [Unknown]
  - Blood pressure increased [Not Recovered/Not Resolved]
  - Blood glucose increased [Recovered/Resolved]
  - Blood glucose fluctuation [Unknown]
  - Pituitary tumour benign [Unknown]
  - Swelling face [Not Recovered/Not Resolved]
  - Hyperhidrosis [Unknown]
  - Skin discolouration [Unknown]
  - Nausea [Unknown]
  - Fatigue [Unknown]
  - Pain [Unknown]
  - Dyspnoea [Recovered/Resolved]
  - Anxiety [Unknown]
  - Drug interaction [Unknown]
  - Drug ineffective [Unknown]

NARRATIVE: CASE EVENT DATE: 20220501
